FAERS Safety Report 25790323 (Version 1)
Quarter: 2025Q3

REPORT INFORMATION
  Report Type: Spontaneous
  Country: GB (occurrence: GB)
  Receive Date: 20250911
  Receipt Date: 20250911
  Transmission Date: 20251020
  Serious: Yes (Other)
  Sender: RANBAXY
  Company Number: GB-SUN PHARMACEUTICAL INDUSTRIES LTD-2025RR-525427

PATIENT
  Age: 72 Year
  Sex: Female
  Weight: 60 kg

DRUGS (18)
  1. CODEINE [Suspect]
     Active Substance: CODEINE
     Indication: Ill-defined disorder
     Route: 065
     Dates: start: 20250827
  2. NEOMYCIN [Concomitant]
     Active Substance: NEOMYCIN
     Indication: Ill-defined disorder
     Route: 065
     Dates: start: 20250624, end: 20250704
  3. CLOTRIMAZOLE [Concomitant]
     Active Substance: CLOTRIMAZOLE
     Indication: Ill-defined disorder
     Route: 065
     Dates: start: 20250725
  4. CHLORHEXIDINE HYDROCHLORIDE\NEOMYCIN SULFATE [Concomitant]
     Active Substance: CHLORHEXIDINE HYDROCHLORIDE\NEOMYCIN SULFATE
     Indication: Ill-defined disorder
     Route: 065
     Dates: start: 20250714, end: 20250724
  5. LOPERAMIDE [Concomitant]
     Active Substance: LOPERAMIDE
     Indication: Ill-defined disorder
     Route: 065
     Dates: start: 20250718
  6. AMOXICILLIN\CLAVULANATE POTASSIUM [Concomitant]
     Active Substance: AMOXICILLIN\CLAVULANATE POTASSIUM
     Indication: Ill-defined disorder
     Route: 065
     Dates: start: 20250721, end: 20250726
  7. CYCLIZINE [Concomitant]
     Active Substance: CYCLIZINE
     Indication: Ill-defined disorder
     Route: 065
     Dates: start: 20250807, end: 20250814
  8. FOLIC ACID [Concomitant]
     Active Substance: FOLIC ACID
     Indication: Ill-defined disorder
     Route: 065
     Dates: start: 20250808
  9. FUROSEMIDE [Concomitant]
     Active Substance: FUROSEMIDE
     Indication: Ill-defined disorder
     Route: 065
     Dates: start: 20250811
  10. LEVOTHYROXINE [Concomitant]
     Active Substance: LEVOTHYROXINE
     Indication: Ill-defined disorder
     Route: 065
     Dates: start: 20241122
  11. BISOPROLOL [Concomitant]
     Active Substance: BISOPROLOL
     Indication: Ill-defined disorder
     Route: 065
     Dates: start: 20250127
  12. DAPAGLIFLOZIN [Concomitant]
     Active Substance: DAPAGLIFLOZIN
     Indication: Ill-defined disorder
     Route: 065
     Dates: start: 20250127
  13. SPIRONOLACTONE [Concomitant]
     Active Substance: SPIRONOLACTONE
     Indication: Ill-defined disorder
     Route: 065
     Dates: start: 20250127
  14. SACUBITRIL [Concomitant]
     Active Substance: SACUBITRIL
     Indication: Ill-defined disorder
     Route: 065
     Dates: start: 20250506
  15. ATORVASTATIN [Concomitant]
     Active Substance: ATORVASTATIN
     Indication: Ill-defined disorder
     Route: 065
     Dates: start: 20250512
  16. CLOPIDOGREL [Concomitant]
     Active Substance: CLOPIDOGREL BISULFATE
     Indication: Ill-defined disorder
     Route: 065
     Dates: start: 20250512
  17. GLYCERYL [Concomitant]
     Indication: Ill-defined disorder
     Route: 065
     Dates: start: 20250512
  18. LANSOPRAZOLE [Concomitant]
     Active Substance: LANSOPRAZOLE
     Indication: Ill-defined disorder
     Route: 065
     Dates: start: 20250512

REACTIONS (1)
  - Hallucination [Unknown]

NARRATIVE: CASE EVENT DATE: 20250827
